FAERS Safety Report 25681306 (Version 4)
Quarter: 2025Q3

REPORT INFORMATION
  Report Type: Report from Study
  Country: US (occurrence: US)
  Receive Date: 20250814
  Receipt Date: 20250925
  Transmission Date: 20251020
  Serious: No
  Sender: MALLINCKRODT
  Company Number: US-MALLINCKRODT-MNK202504868

PATIENT
  Sex: Female

DRUGS (2)
  1. CORTICOTROPIN [Suspect]
     Active Substance: CORTICOTROPIN
     Indication: Ankylosing spondylitis
  2. VITAMIN D NOS [Concomitant]
     Active Substance: CHOLECALCIFEROL\ERGOCALCIFEROL

REACTIONS (9)
  - Dry eye [Unknown]
  - Post-traumatic stress disorder [Unknown]
  - Feeling abnormal [Unknown]
  - Osteopenia [Unknown]
  - Stress [Unknown]
  - Liver disorder [Unknown]
  - Injection site pain [Unknown]
  - Injection site discolouration [Unknown]
  - Therapy non-responder [Unknown]
